FAERS Safety Report 5906846-2 (Version None)
Quarter: 2008Q3

REPORT INFORMATION
  Report Type: 
  Country: None (occurrence: None)
  Receive Date: 20080929
  Receipt Date: 20080917
  Transmission Date: 20090109
  Serious: Yes (Other)
  Sender: FDA-Public Use
  Company Number: 2008US002093

PATIENT
  Age: 5 Year
  Sex: Female
  Weight: 25.4 kg

DRUGS (2)
  1. PROGRAF [Suspect]
     Indication: LIVER TRANSPLANT
     Dosage: 2 MG, BID, ORAL; 7 MG, BID, ORAL
     Route: 048
     Dates: start: 20070601
  2. PROGRAF [Suspect]
     Indication: LIVER TRANSPLANT
     Dosage: 2 MG, BID, ORAL; 7 MG, BID, ORAL
     Route: 048
     Dates: start: 20080701

REACTIONS (6)
  - DRUG LEVEL INCREASED [None]
  - HEADACHE [None]
  - HYPERTENSION [None]
  - PRURITUS [None]
  - TRANSPLANT REJECTION [None]
  - WRONG TECHNIQUE IN DRUG USAGE PROCESS [None]
